FAERS Safety Report 25155164 (Version 1)
Quarter: 2025Q2

REPORT INFORMATION
  Report Type: Spontaneous
  Country: HR (occurrence: HR)
  Receive Date: 20250403
  Receipt Date: 20250403
  Transmission Date: 20250716
  Serious: Yes (Hospitalization, Other)
  Sender: ABBVIE
  Company Number: HR-ABBVIE-6205407

PATIENT
  Age: 20 Year
  Sex: Male

DRUGS (2)
  1. RINVOQ [Suspect]
     Active Substance: UPADACITINIB
     Indication: Crohn^s disease
     Dosage: 45 MILLIGRAM
     Route: 048
  2. RINVOQ [Suspect]
     Active Substance: UPADACITINIB
     Indication: Crohn^s disease
     Dosage: 45 MILLIGRAM
     Route: 048
     Dates: start: 20241215, end: 202502

REACTIONS (10)
  - Gastroenteritis viral [Unknown]
  - Faecal calprotectin increased [Unknown]
  - Abdominal pain [Unknown]
  - Diarrhoea [Unknown]
  - Vomiting [Unknown]
  - Pyrexia [Unknown]
  - C-reactive protein increased [Unknown]
  - Faecal calprotectin increased [Unknown]
  - Disease progression [Unknown]
  - Norovirus infection [Unknown]

NARRATIVE: CASE EVENT DATE: 20250103
